FAERS Safety Report 8023576-4 (Version None)
Quarter: 2012Q1

REPORT INFORMATION
  Report Type: 
  Country: None (occurrence: None)
  Receive Date: 20120105
  Receipt Date: 20111214
  Transmission Date: 20120608
  Serious: Yes (Death, Other)
  Sender: FDA-Public Use
  Company Number: US-PAR PHARMACEUTICAL, INC-2011SCPR003617

PATIENT
  Age: 50 Year
  Sex: Male

DRUGS (2)
  1. COLCHICINE [Suspect]
     Indication: PRODUCT USED FOR UNKNOWN INDICATION
     Dosage: 30 DF, UNKNOWN
     Route: 048
  2. ALPRAZOLAM [Suspect]
     Indication: PRODUCT USED FOR UNKNOWN INDICATION
     Dosage: 60 DF, UNKNOWN
     Route: 048

REACTIONS (19)
  - URINE OUTPUT DECREASED [None]
  - BLOOD BICARBONATE DECREASED [None]
  - BLOOD URINE PRESENT [None]
  - COMPLETED SUICIDE [None]
  - BLOOD CREATINE PHOSPHOKINASE INCREASED [None]
  - INFUSION SITE HAEMORRHAGE [None]
  - ATAXIA [None]
  - PLATELET COUNT DECREASED [None]
  - MENTAL DISORDER [None]
  - BLOOD UREA INCREASED [None]
  - TACHYPNOEA [None]
  - DEATH [None]
  - BLOOD GLUCOSE INCREASED [None]
  - EYE HAEMORRHAGE [None]
  - EPISTAXIS [None]
  - MOUTH HAEMORRHAGE [None]
  - GASTROINTESTINAL SOUNDS ABNORMAL [None]
  - BLOOD CREATININE INCREASED [None]
  - TACHYCARDIA [None]
